FAERS Safety Report 8018766-0 (Version None)
Quarter: 2011Q4

REPORT INFORMATION
  Report Type: 
  Country: None (occurrence: None)
  Receive Date: 20111227
  Receipt Date: 20111219
  Transmission Date: 20120403
  Serious: Yes (Life-Threatening, Hospitalization)
  Sender: FDA-Public Use
  Company Number: GGEL20111201621

PATIENT
  Age: 14 Year
  Sex: Male
  Weight: 67 kg

DRUGS (4)
  1. PARACETAMOL (PARACETAMOL) (PARACETAMOL) [Concomitant]
  2. CARBAMAZEPINE [Suspect]
     Indication: CONVULSION
     Dosage: ORAL
     Route: 048
     Dates: start: 20110601, end: 20110707
  3. TOPIRAMATE [Suspect]
     Indication: PRODUCT USED FOR UNKNOWN INDICATION
     Dates: start: 20110707
  4. AMOXICILLIN [Suspect]
     Indication: PRODUCT USED FOR UNKNOWN INDICATION
     Dates: start: 20110601

REACTIONS (4)
  - COAGULOPATHY [None]
  - ULTRASOUND LIVER ABNORMAL [None]
  - HEPATIC FUNCTION ABNORMAL [None]
  - DRUG RASH WITH EOSINOPHILIA AND SYSTEMIC SYMPTOMS [None]
